FAERS Safety Report 7412445-6 (Version None)
Quarter: 2011Q2

REPORT INFORMATION
  Report Type: 
  Country: None (occurrence: None)
  Receive Date: 20110413
  Receipt Date: 20110331
  Transmission Date: 20111010
  Serious: Yes (Other)
  Sender: FDA-Public Use
  Company Number: US-AMGEN-USASP2011017420

PATIENT
  Age: 66 Year
  Sex: Female

DRUGS (2)
  1. ENBREL [Suspect]
     Indication: RHEUMATOID ARTHRITIS
     Dosage: 50 MG, QWK
     Dates: start: 20020101
  2. METHOTREXATE [Concomitant]

REACTIONS (11)
  - URTICARIA [None]
  - INCORRECT DOSE ADMINISTERED [None]
  - LIVER FUNCTION TEST ABNORMAL [None]
  - DIARRHOEA [None]
  - INJECTION SITE ERYTHEMA [None]
  - FOOD ALLERGY [None]
  - SWOLLEN TONGUE [None]
  - INJECTION SITE DRYNESS [None]
  - INJECTION SITE PAIN [None]
  - INJECTION SITE RASH [None]
  - INJECTION SITE PRURITUS [None]
